FAERS Safety Report 5564741-5 (Version None)
Quarter: 2007Q4

REPORT INFORMATION
  Report Type: 
  Country: None (occurrence: None)
  Receive Date: 20071218
  Receipt Date: 20071206
  Transmission Date: 20080405
  Serious: Yes (Other)
  Sender: FDA-Public Use
  Company Number: GB-ROCHE-535655

PATIENT
  Age: 60 Year
  Sex: Male
  Weight: 133.3 kg

DRUGS (11)
  1. XENICAL [Suspect]
     Indication: OBESITY
     Route: 048
     Dates: start: 20070628
  2. ASPIRIN [Concomitant]
     Route: 048
  3. METFORMIN HCL [Concomitant]
     Route: 048
  4. CITALOPRAM HYDROBROMIDE [Concomitant]
     Route: 048
  5. IKOREL [Concomitant]
     Route: 048
  6. RAMIPRIL [Concomitant]
     Dosage: DRUG : RAMPRIMAL
     Route: 048
  7. SIMVASTATIN [Concomitant]
  8. IKTORIL [Concomitant]
     Dosage: DRUG: ITORIL INHALER
     Route: 048
  9. CODEINE SUL TAB [Concomitant]
     Route: 048
  10. ACETAMINOPHEN [Concomitant]
     Route: 048
  11. 3 CONCOMITANT DRUGS [Concomitant]
     Dosage: DRUG: ADRONEL, OPRINAZOLE, CLAPODOGEROL
     Route: 048

REACTIONS (1)
  - EAR PAIN [None]
